FAERS Safety Report 5868510-8 (Version None)
Quarter: 2008Q3

REPORT INFORMATION
  Report Type: 
  Country: None (occurrence: None)
  Receive Date: 20080902
  Receipt Date: 20080902
  Transmission Date: 20090109
  Serious: No
  Sender: FDA-Public Use
  Company Number: None

PATIENT
  Age: 56 Year
  Sex: Female
  Weight: 83.4619 kg

DRUGS (6)
  1. ENBREL [Suspect]
     Indication: RHEUMATOID ARTHRITIS
     Dosage: 1 SHOT WEEKLY IM
     Route: 030
     Dates: start: 20040310, end: 20071219
  2. CLONAZEPAM [Concomitant]
  3. FLEXERALL [Concomitant]
  4. WELLBUTRIN [Concomitant]
  5. REQUIP [Concomitant]
  6. EFFEXOR [Concomitant]

REACTIONS (7)
  - BALANCE DISORDER [None]
  - FATIGUE [None]
  - GAIT DISTURBANCE [None]
  - INSOMNIA [None]
  - MULTIPLE SCLEROSIS [None]
  - STRESS [None]
  - VISION BLURRED [None]
